FAERS Safety Report 9383360 (Version 4)
Quarter: 2016Q4

REPORT INFORMATION
  Report Type: Report from Study
  Country: US (occurrence: US)
  Receive Date: 20130704
  Receipt Date: 20161003
  Transmission Date: 20170207
  Serious: Yes (Hospitalization, Other)
  Sender: FDA-Public Use
  Company Number: US-ROCHE-1243491

PATIENT
  Age: 72 Year
  Sex: Female
  Weight: 80.4 kg

DRUGS (21)
  1. BEVACIZUMAB [Suspect]
     Active Substance: BEVACIZUMAB
     Route: 042
     Dates: start: 20111212
  2. BEVACIZUMAB [Suspect]
     Active Substance: BEVACIZUMAB
     Route: 042
     Dates: start: 20120305
  3. BEVACIZUMAB [Suspect]
     Active Substance: BEVACIZUMAB
     Dosage: ALSO RECEIVED ON 25/JUN/2012, 20/AUG/2012, 17/SEP/2012, 15/OCT/2012, 12/NOV/2012, 13/DEC/2012 AND 05
     Route: 042
     Dates: start: 20120528
  4. CCI-779 (TEMSIROLIMUS) [Suspect]
     Active Substance: TEMSIROLIMUS
     Indication: NEOPLASM MALIGNANT
     Dosage: ON DAYS 1,8, 15, 22
     Route: 042
     Dates: start: 20101213
  5. CCI-779 (TEMSIROLIMUS) [Suspect]
     Active Substance: TEMSIROLIMUS
     Route: 042
     Dates: start: 20110214
  6. BEVACIZUMAB [Suspect]
     Active Substance: BEVACIZUMAB
     Indication: NEOPLASM MALIGNANT
     Dosage: 10 MG/KG, OVER 30-90 MIN ON DAYS 1 AND 15,  LAST ADMINISTERED DATE: 19/FEB/2013
     Route: 042
     Dates: start: 20101213
  7. BEVACIZUMAB [Suspect]
     Active Substance: BEVACIZUMAB
     Route: 042
     Dates: start: 20110613
  8. BEVACIZUMAB [Suspect]
     Active Substance: BEVACIZUMAB
     Route: 042
     Dates: start: 20111116
  9. BEVACIZUMAB [Suspect]
     Active Substance: BEVACIZUMAB
     Route: 042
     Dates: start: 20120109
  10. CCI-779 (TEMSIROLIMUS) [Suspect]
     Active Substance: TEMSIROLIMUS
     Route: 042
     Dates: start: 20110110
  11. BEVACIZUMAB [Suspect]
     Active Substance: BEVACIZUMAB
     Route: 042
     Dates: start: 20110912
  12. BEVACIZUMAB [Suspect]
     Active Substance: BEVACIZUMAB
     Route: 042
     Dates: start: 20130219
  13. CCI-779 (TEMSIROLIMUS) [Suspect]
     Active Substance: TEMSIROLIMUS
     Route: 042
     Dates: start: 20110314
  14. BEVACIZUMAB [Suspect]
     Active Substance: BEVACIZUMAB
     Route: 042
     Dates: start: 20111010
  15. BEVACIZUMAB [Suspect]
     Active Substance: BEVACIZUMAB
     Route: 042
     Dates: start: 20110110
  16. BEVACIZUMAB [Suspect]
     Active Substance: BEVACIZUMAB
     Route: 042
     Dates: start: 20110314
  17. BEVACIZUMAB [Suspect]
     Active Substance: BEVACIZUMAB
     Route: 042
     Dates: start: 20120206
  18. BEVACIZUMAB [Suspect]
     Active Substance: BEVACIZUMAB
     Route: 042
     Dates: start: 20120402
  19. BEVACIZUMAB [Suspect]
     Active Substance: BEVACIZUMAB
     Route: 042
     Dates: start: 20120430
  20. BEVACIZUMAB [Suspect]
     Active Substance: BEVACIZUMAB
     Route: 042
     Dates: start: 20110214
  21. BEVACIZUMAB [Suspect]
     Active Substance: BEVACIZUMAB
     Route: 042
     Dates: start: 20110412

REACTIONS (14)
  - Acute kidney injury [Unknown]
  - Musculoskeletal pain [Unknown]
  - Sinus tachycardia [Unknown]
  - Pulmonary haemorrhage [Unknown]
  - Hypertension [Unknown]
  - Dehydration [Recovered/Resolved]
  - Diarrhoea [Recovered/Resolved]
  - Sepsis [Recovered/Resolved]
  - Post procedural oedema [Unknown]
  - Syncope [Recovered/Resolved with Sequelae]
  - Acute kidney injury [Recovered/Resolved]
  - Hypokalaemia [Recovered/Resolved]
  - Dental caries [Unknown]
  - Pain in extremity [Unknown]

NARRATIVE: CASE EVENT DATE: 20120315
